FAERS Safety Report 5546454-9 (Version None)
Quarter: 2007Q4

REPORT INFORMATION
  Report Type: 
  Country: None (occurrence: None)
  Receive Date: 20071206
  Receipt Date: 20071206
  Transmission Date: 20080405
  Serious: Yes (Hospitalization, Other)
  Sender: FDA-Public Use
  Company Number: None

PATIENT
  Age: 84 Year
  Sex: Female
  Weight: 90.2 kg

DRUGS (3)
  1. DAPTOMYCIN   500 MG [Suspect]
     Indication: CELLULITIS
     Dosage: 500 MG   Q24H   IV DRIP
     Route: 041
     Dates: start: 20071122, end: 20071124
  2. ZOSYN [Concomitant]
  3. VANCOMYCIN [Concomitant]

REACTIONS (2)
  - BLOOD CREATININE INCREASED [None]
  - HAEMODIALYSIS [None]
